FAERS Safety Report 6111977-0 (Version None)
Quarter: 2009Q1

REPORT INFORMATION
  Report Type: 
  Country: None (occurrence: None)
  Receive Date: 20090311
  Receipt Date: 20090304
  Transmission Date: 20090719
  Serious: Yes (Other)
  Sender: FDA-Public Use
  Company Number: US-GILEAD-2009-0020687

PATIENT
  Age: 46 Year
  Sex: Male

DRUGS (6)
  1. TRUVADA [Suspect]
     Indication: HIV INFECTION
     Dates: start: 20080201
  2. PREZISTA [Suspect]
     Indication: HIV INFECTION
     Route: 048
     Dates: start: 20080201
  3. INTELENCE [Suspect]
     Indication: HIV INFECTION
     Route: 048
     Dates: start: 20080201
  4. NORVIR [Suspect]
     Indication: HIV INFECTION
     Dates: start: 20080201
  5. REYATAZ [Suspect]
     Indication: HIV INFECTION
     Dates: start: 20080201
  6. ISENTRESS [Suspect]
     Indication: HIV INFECTION
     Dates: start: 20080201

REACTIONS (4)
  - FATIGUE [None]
  - HYPERTENSION [None]
  - LIPODYSTROPHY ACQUIRED [None]
  - OSTEONECROSIS [None]
